FAERS Safety Report 9897150 (Version 2)
Quarter: 2016Q2

REPORT INFORMATION
  Report Type: Report from Study
  Country: US (occurrence: US)
  Receive Date: 20140214
  Receipt Date: 20160520
  Transmission Date: 20160815
  Serious: Yes (Other)
  Sender: FDA-Public Use
  Company Number: US-ROCHE-1345919

PATIENT
  Age: 55 Year
  Sex: Male
  Weight: 87.62 kg

DRUGS (4)
  1. PREDNISONE. [Concomitant]
     Active Substance: PREDNISONE
     Indication: RHEUMATOID ARTHRITIS
     Route: 048
     Dates: start: 201107
  2. TRAMADOL. [Concomitant]
     Active Substance: TRAMADOL
     Route: 048
  3. ORENCIA [Suspect]
     Active Substance: ABATACEPT
     Indication: RHEUMATOID ARTHRITIS
     Route: 058
     Dates: start: 2013
  4. RITUXAN [Suspect]
     Active Substance: RITUXIMAB
     Indication: RHEUMATOID ARTHRITIS
     Dosage: FREQUENCY: Q14D X 2 Q6 MO, DAY 1 AND DAY 15
     Route: 041
     Dates: start: 2008, end: 201309

REACTIONS (8)
  - Rheumatoid arthritis [Not Recovered/Not Resolved]
  - Paraesthesia [Not Recovered/Not Resolved]
  - Burning sensation [Not Recovered/Not Resolved]
  - C-reactive protein increased [Not Recovered/Not Resolved]
  - Drug ineffective [Unknown]
  - Red blood cell sedimentation rate increased [Not Recovered/Not Resolved]
  - Somnolence [Unknown]
  - Joint swelling [Unknown]

NARRATIVE: CASE EVENT DATE: 201107
